FAERS Safety Report 18303408 (Version 3)
Quarter: 2021Q1

REPORT INFORMATION
  Report Type: Spontaneous
  Country: IN (occurrence: IN)
  Receive Date: 20200923
  Receipt Date: 20210224
  Transmission Date: 20210419
  Serious: Yes (Other)
  Sender: FDA-Public Use
  Company Number: IN-PFIZER INC-2020364727

PATIENT
  Age: 50 Year
  Sex: Female
  Weight: 46.5 kg

DRUGS (5)
  1. HERCLON [Concomitant]
     Active Substance: TRASTUZUMAB
     Dosage: 280 MG IN 500ML NS IV OVER 60 MIN
  2. LETROZOLE. [Concomitant]
     Active Substance: LETROZOLE
     Dosage: 2.5 MG, 1X/DAY
  3. PALBACE [Suspect]
     Active Substance: PALBOCICLIB
     Indication: BREAST CANCER METASTATIC
     Dosage: 125 MG, 1X/DAY
     Route: 048
     Dates: start: 20200914
  4. PERJETA [Concomitant]
     Active Substance: PERTUZUMAB
     Dosage: 420 MG IN 500MG NS IV OVER 60MIN
  5. ZOLEDRONIC ACID [Concomitant]
     Active Substance: ZOLEDRONIC ACID
     Dosage: 4 MG IN 100ML NS IV OVER 30MIN

REACTIONS (5)
  - Blood pressure decreased [Unknown]
  - Loss of consciousness [Unknown]
  - Pyrexia [Unknown]
  - Decreased appetite [Unknown]
  - Pain [Unknown]

NARRATIVE: CASE EVENT DATE: 202009
